FAERS Safety Report 9867664 (Version 3)
Quarter: 2014Q2

REPORT INFORMATION
  Report Type: Spontaneous
  Country: SE (occurrence: SE)
  Receive Date: 20140204
  Receipt Date: 20140507
  Transmission Date: 20141212
  Serious: Yes (Hospitalization)
  Sender: FDA-Public Use
  Company Number: SE-SA-2014SA010139

PATIENT
  Age: 67 Year
  Sex: Female

DRUGS (7)
  1. TAXOTERE [Suspect]
     Indication: BREAST CANCER
     Route: 042
     Dates: start: 20131001, end: 20131001
  2. TAXOTERE [Suspect]
     Indication: BREAST CANCER
     Route: 042
     Dates: start: 20131022, end: 20131022
  3. LEVAXIN [Concomitant]
  4. IMOVANE [Concomitant]
  5. CALCICHEW-D3 [Concomitant]
  6. FLUOXETINE [Concomitant]
     Dates: start: 20130930, end: 20131005
  7. NORMORIX MITE [Concomitant]
     Dosage: STRENGTH: 2.5MG/25 MG
     Dates: start: 20131005

REACTIONS (3)
  - Hyponatraemia [Recovered/Resolved]
  - Nausea [Recovered/Resolved]
  - Pain [Recovered/Resolved]
